FAERS Safety Report 17358276 (Version 2)
Quarter: 2020Q3

REPORT INFORMATION
  Report Type: Spontaneous
  Country: DE (occurrence: DE)
  Receive Date: 20200201
  Receipt Date: 20200919
  Transmission Date: 20201102
  Serious: Yes (Other)
  Sender: FDA-Public Use
  Company Number: DE-SUN PHARMACEUTICAL INDUSTRIES LTD-2020RR-235304

PATIENT
  Sex: Female

DRUGS (12)
  1. NICOTINE. [Suspect]
     Active Substance: NICOTINE
     Indication: PRODUCT USED FOR UNKNOWN INDICATION
     Dosage: ()
     Route: 065
  2. OMEPRAZOLE. [Suspect]
     Active Substance: OMEPRAZOLE
     Indication: DYSPEPSIA
     Dosage: UNK
     Route: 065
  3. INSULIN GLARGINE [Suspect]
     Active Substance: INSULIN GLARGINE
     Indication: PRODUCT USED FOR UNKNOWN INDICATION
     Dosage: ()
     Route: 065
  4. SALMETEROL [Suspect]
     Active Substance: SALMETEROL
     Indication: ASTHMA
     Dosage: ()
     Route: 065
  5. PARACETAMOL [Suspect]
     Active Substance: ACETAMINOPHEN
     Indication: PYREXIA
     Dosage: FROM 18 PLUS 5 TO 23 WEEKS OF GESTATION ()
     Route: 065
  6. ZOLPIDEM [Suspect]
     Active Substance: ZOLPIDEM TARTRATE
     Indication: SLEEP DISORDER
     Dosage: ()
     Route: 065
  7. SALBUTAMOL [Suspect]
     Active Substance: ALBUTEROL
     Indication: ASTHMA
     Dosage: ()
     Route: 065
  8. PROGESTERONE. [Suspect]
     Active Substance: PROGESTERONE
     Indication: ASSISTED FERTILISATION
     Dosage: ()
     Route: 065
  9. CLOBETASOL [Suspect]
     Active Substance: CLOBETASOL
     Indication: PRODUCT USED FOR UNKNOWN INDICATION
     Dosage: ()
     Route: 065
  10. LORAZEPAM. [Suspect]
     Active Substance: LORAZEPAM
     Indication: SLEEP DISORDER
     Dosage: DURING FIRST TO THIRD TRIMESTER ()
     Route: 065
  11. FLUTICASONE. [Suspect]
     Active Substance: FLUTICASONE
     Indication: ASTHMA
     Dosage: ()
     Route: 065
  12. METFORMIN [Suspect]
     Active Substance: METFORMIN HYDROCHLORIDE
     Indication: GESTATIONAL DIABETES
     Dosage: ()
     Route: 065

REACTIONS (2)
  - Oligohydramnios [Unknown]
  - Maternal exposure during pregnancy [Unknown]
